FAERS Safety Report 6661661 (Version 2)
Quarter: 2012Q4

REPORT INFORMATION
  Report Type: Report from Study
  Country: DE (occurrence: DE)
  Receive Date: 20080610
  Receipt Date: 20120921
  Transmission Date: 20130627
  Serious: Yes (Death, Hospitalization)
  Sender: FDA-Public Use
  Company Number: DE-PFIZER INC-2008046593

PATIENT
  Age: 83 Year
  Sex: Female
  Weight: 96 kg

DRUGS (13)
  1. PEGVISOMANT [Suspect]
     Indication: ACROMEGALY
     Dosage: 30 mg, 1x/day
     Dates: start: 20061027
  2. METHIONINE [Concomitant]
     Dosage: UNK
     Dates: start: 20080220
  3. PANTOZOL [Concomitant]
     Dosage: UNK
     Dates: start: 20080220
  4. CALCIUM [Concomitant]
     Dosage: UNK
  5. VIGANTOLETTEN ^BAYER^ [Concomitant]
     Dosage: UNK
  6. FRAGMIN [Concomitant]
     Dosage: UNK
  7. L-THYROXIN [Concomitant]
     Indication: BLOOD THYROID STIMULATING HORMONE DECREASED
     Dosage: UNK
     Dates: start: 20080220
  8. HYDROCORTISON [Concomitant]
     Indication: BLOOD CORTICOTROPHIN DECREASED
     Dosage: UNK
  9. ACTONEL [Concomitant]
     Dosage: UNK
  10. SPIRIVA ^PFIZER^ [Concomitant]
     Indication: RESPIRATORY DISORDER
     Dosage: UNK
  11. BEROTEC [Concomitant]
     Indication: RESPIRATORY DISORDER
     Dosage: UNK
  12. ACTRAPHANE HM [Concomitant]
     Dosage: UNK
     Dates: start: 20080220
  13. FERRO SANOL DUODENAL [Concomitant]
     Dosage: UNK

REACTIONS (2)
  - Death [Fatal]
  - Pneumonia [Not Recovered/Not Resolved]
